FAERS Safety Report 12770066 (Version 1)
Quarter: 2016Q3

REPORT INFORMATION
  Report Type: Spontaneous
  Country: US (occurrence: US)
  Receive Date: 20160922
  Receipt Date: 20160922
  Transmission Date: 20161109
  Serious: No
  Sender: FDA-Public Use
  Company Number: US-009507513-1609USA006864

PATIENT

DRUGS (2)
  1. CUBICIN [Suspect]
     Active Substance: DAPTOMYCIN
     Dosage: UNK
  2. CUBICIN RF [Suspect]
     Active Substance: DAPTOMYCIN
     Dosage: UNK

REACTIONS (3)
  - Product name confusion [Unknown]
  - Incorrect product storage [Unknown]
  - Intercepted medication error [Unknown]
